FAERS Safety Report 15048654 (Version 2)
Quarter: 2018Q2

REPORT INFORMATION
  Report Type: Spontaneous
  Country: US (occurrence: US)
  Receive Date: 20180622
  Receipt Date: 20180622
  Transmission Date: 20180711
  Serious: Yes (Other)
  Sender: FDA-Public Use
  Company Number: US-CATALENT PHARMA SOLUTIONS-CAT-000184-2018

PATIENT
  Age: 21 Year
  Sex: Female

DRUGS (3)
  1. VALPROIC ACID. [Suspect]
     Active Substance: VALPROIC ACID
     Indication: EPILEPSY
     Dosage: UNK
     Route: 065
  2. LEVETIRACETAM. [Suspect]
     Active Substance: LEVETIRACETAM
     Indication: EPILEPSY
     Dosage: UNK
     Route: 065
  3. TOPIRAMATE. [Suspect]
     Active Substance: TOPIRAMATE
     Indication: EPILEPSY
     Dosage: UNK
     Route: 065

REACTIONS (9)
  - Rales [Unknown]
  - Confusional state [Unknown]
  - Pneumonia [Unknown]
  - Dyspnoea [Unknown]
  - Hyperammonaemic encephalopathy [Recovered/Resolved]
  - Tachycardia [Unknown]
  - Lack of spontaneous speech [Unknown]
  - Respiratory failure [Unknown]
  - Cough [Unknown]
